FAERS Safety Report 7320655-1 (Version None)
Quarter: 2011Q1

REPORT INFORMATION
  Report Type: 
  Country: None (occurrence: None)
  Receive Date: 20110228
  Receipt Date: 20110215
  Transmission Date: 20110831
  Serious: Yes (Disabling, Other)
  Sender: FDA-Public Use
  Company Number: US-ROCHE-734050

PATIENT
  Sex: Female
  Weight: 44.5 kg

DRUGS (2)
  1. ACCUTANE [Suspect]
     Indication: ACNE
     Route: 065
     Dates: start: 19830101, end: 19830601
  2. ACCUTANE [Suspect]
     Route: 065
     Dates: start: 19850101, end: 19890101

REACTIONS (14)
  - GENERALISED ANXIETY DISORDER [None]
  - WEIGHT DECREASED [None]
  - GASTROINTESTINAL INJURY [None]
  - RHEUMATOID ARTHRITIS [None]
  - INTESTINAL HAEMORRHAGE [None]
  - HERNIA [None]
  - DEPRESSION [None]
  - INFLAMMATORY BOWEL DISEASE [None]
  - ANAEMIA [None]
  - CHRONIC FATIGUE SYNDROME [None]
  - OESOPHAGEAL DISORDER [None]
  - CROHN'S DISEASE [None]
  - COLITIS ULCERATIVE [None]
  - INTERVERTEBRAL DISC DEGENERATION [None]
